FAERS Safety Report 7893709-9 (Version None)
Quarter: 2011Q4

REPORT INFORMATION
  Report Type: 
  Country: None (occurrence: None)
  Receive Date: 20111104
  Receipt Date: 20111027
  Transmission Date: 20120403
  Serious: Yes (Other)
  Sender: FDA-Public Use
  Company Number: US-AMGEN-USASP2011056277

PATIENT
  Sex: Male

DRUGS (2)
  1. NEUMEGA [Concomitant]
  2. ARANESP [Suspect]
     Indication: PLATELET COUNT DECREASED

REACTIONS (3)
  - PLATELET COUNT DECREASED [None]
  - SURGERY [None]
  - HAEMORRHAGE [None]
